FAERS Safety Report 11539380 (Version 1)
Quarter: 2015Q3

REPORT INFORMATION
  Report Type: Spontaneous
  Country: US (occurrence: US)
  Receive Date: 20150923
  Receipt Date: 20150923
  Transmission Date: 20151125
  Serious: Yes (Other)
  Sender: FDA-Public Use
  Company Number: US-AMGEN-USASP2015097662

PATIENT
  Age: 66 Year
  Sex: Female

DRUGS (12)
  1. ATENOLOL. [Concomitant]
     Active Substance: ATENOLOL
  2. OMEPRAZOLE. [Concomitant]
     Active Substance: OMEPRAZOLE
  3. AMLODIPINE [Concomitant]
     Active Substance: AMLODIPINE BESYLATE
  4. SIMVASTATIN. [Concomitant]
     Active Substance: SIMVASTATIN
  5. FEXOFENADINE [Concomitant]
     Active Substance: FEXOFENADINE\FEXOFENADINE HYDROCHLORIDE
  6. ENBREL [Suspect]
     Active Substance: ETANERCEPT
     Indication: RHEUMATOID ARTHRITIS
     Dosage: 50 MG, QWK
     Route: 058
     Dates: start: 2011, end: 20150826
  7. RAMIPRIL. [Concomitant]
     Active Substance: RAMIPRIL
  8. PIOGLITAZONE. [Concomitant]
     Active Substance: PIOGLITAZONE
     Dosage: UNK
  9. METFORMIN [Concomitant]
     Active Substance: METFORMIN HYDROCHLORIDE
  10. GEMFIBROZIL. [Concomitant]
     Active Substance: GEMFIBROZIL
  11. METHOTREXATE [Concomitant]
     Active Substance: METHOTREXATE
  12. GLIPIZIDE. [Concomitant]
     Active Substance: GLIPIZIDE

REACTIONS (1)
  - Pneumonia [Unknown]

NARRATIVE: CASE EVENT DATE: 20150826
